FAERS Safety Report 7432430-8 (Version None)
Quarter: 2011Q2

REPORT INFORMATION
  Report Type: 
  Country: None (occurrence: None)
  Receive Date: 20110414
  Receipt Date: 20110405
  Transmission Date: 20111010
  Serious: Yes (Death)
  Sender: FDA-Public Use
  Company Number: FK201100647

PATIENT
  Age: 20 Year
  Sex: Female

DRUGS (5)
  1. TOPOTECAN [Suspect]
     Indication: ACUTE LYMPHOCYTIC LEUKAEMIA
     Dosage: 1 MG/M2, ON DAY 2-6
  2. VINORELBINE [Suspect]
     Indication: ACUTE LYMPHOCYTIC LEUKAEMIA
     Dosage: 20 MG/M2, ON DAYS 1,8,15 AND 22
  3. DEXAMETHASONE [Concomitant]
  4. CISPLATIN [Suspect]
     Indication: ACUTE LYMPHOCYTIC LEUKAEMIA
     Dosage: 20 MG/M2, ON DAY 3
  5. GEMCITABINE (GEMCITABINE) [Concomitant]

REACTIONS (6)
  - NEUTROPENIA [None]
  - HYPERAMMONAEMIA [None]
  - DISORIENTATION [None]
  - SOMNOLENCE [None]
  - LIVER DISORDER [None]
  - CONVULSION [None]
